APPROVED DRUG PRODUCT: PROPOFOL
Active Ingredient: PROPOFOL
Strength: 10MG/ML
Dosage Form/Route: INJECTABLE;INJECTION
Application: A205307 | Product #001
Applicant: WATSON LABORATORIES INC
Approved: Dec 22, 2015 | RLD: No | RS: No | Type: DISCN